FAERS Safety Report 7026330-5 (Version None)
Quarter: 2010Q4

REPORT INFORMATION
  Report Type: 
  Country: None (occurrence: None)
  Receive Date: 20101004
  Receipt Date: 20100928
  Transmission Date: 20110411
  Serious: Yes (Death)
  Sender: FDA-Public Use
  Company Number: IE-PFIZER INC-2010066683

PATIENT
  Age: 83 Year
  Sex: Male

DRUGS (3)
  1. CELEBREX [Suspect]
     Indication: INFLAMMATION
     Dosage: 200 MG, 1X/DAY
     Route: 048
  2. TRITACE [Concomitant]
     Indication: HYPERTENSION
     Dosage: UNK
  3. TENORMIN [Concomitant]
     Dosage: UNK

REACTIONS (1)
  - HAEMORRHAGIC STROKE [None]
